FAERS Safety Report 4953812-X (Version None)
Quarter: 2006Q1

REPORT INFORMATION
  Report Type: 
  Country: None (occurrence: None)
  Receive Date: 20060324
  Receipt Date: 20060324
  Transmission Date: 20060701
  Serious: Yes (Death)
  Sender: FDA-Public Use
  Company Number: None

PATIENT
  Sex: Female

DRUGS (1)
  1. NIMOTOP [Suspect]
     Indication: CEREBRAL DISORDER
     Dosage: 60 MG PO DOWN NG TUBE   Q4   OTHER
     Route: 050
     Dates: start: 20060130, end: 20060202

REACTIONS (4)
  - CEREBROVASCULAR ACCIDENT [None]
  - CIRCUMSTANCE OR INFORMATION CAPABLE OF LEADING TO MEDICATION ERROR [None]
  - HEART RATE DECREASED [None]
  - PHARMACEUTICAL PRODUCT COMPLAINT [None]
